FAERS Safety Report 12772043 (Version 1)
Quarter: 2016Q3

REPORT INFORMATION
  Report Type: Spontaneous
  Country: US (occurrence: US)
  Receive Date: 20160922
  Receipt Date: 20160922
  Transmission Date: 20161109
  Serious: No
  Sender: FDA-Public Use
  Company Number: US-ASTRAZENECA-2016SE98005

PATIENT
  Sex: Female

DRUGS (4)
  1. SYMBICORT [Suspect]
     Active Substance: BUDESONIDE\FORMOTEROL FUMARATE DIHYDRATE
     Indication: ASTHMA
     Dosage: 160/4.5 MCG; 2 PUFFS TWICE DAILY
     Route: 055
     Dates: start: 20160621
  2. FLOVENT [Concomitant]
     Active Substance: FLUTICASONE PROPIONATE
     Dosage: 2 PUFFS TWICE DAILY
  3. FLOVENT [Concomitant]
     Active Substance: FLUTICASONE PROPIONATE
     Dosage: 1 INHALATION AT NIGHT BEFORE BED
  4. SYMBICORT [Suspect]
     Active Substance: BUDESONIDE\FORMOTEROL FUMARATE DIHYDRATE
     Indication: CHRONIC OBSTRUCTIVE PULMONARY DISEASE
     Dosage: 160/4.5 MCG; 2 PUFFS TWICE DAILY
     Route: 055
     Dates: start: 20160621

REACTIONS (8)
  - Drug ineffective [Unknown]
  - Incorrect dose administered [Unknown]
  - Dyspnoea [Unknown]
  - Coeliac disease [Unknown]
  - Asthma [Unknown]
  - Cataract [Unknown]
  - Malaise [Unknown]
  - Product quality issue [Unknown]
